FAERS Safety Report 11364711 (Version 1)
Quarter: 2015Q3

REPORT INFORMATION
  Report Type: Spontaneous
  Country: US (occurrence: US)
  Receive Date: 20150811
  Receipt Date: 20150811
  Transmission Date: 20151125
  Serious: Yes (Death, Other)
  Sender: FDA-Public Use
  Company Number: US-PFIZER INC-2015261881

PATIENT

DRUGS (2)
  1. XALATAN [Suspect]
     Active Substance: LATANOPROST
     Dosage: UNK
  2. GLUCOTROL XL [Suspect]
     Active Substance: GLIPIZIDE
     Dosage: UNK

REACTIONS (1)
  - Death [Fatal]
